FAERS Safety Report 5718008-2 (Version None)
Quarter: 2008Q2

REPORT INFORMATION
  Report Type: 
  Country: None (occurrence: None)
  Receive Date: 20080425
  Receipt Date: 20080416
  Transmission Date: 20081010
  Serious: Yes (Hospitalization)
  Sender: FDA-Public Use
  Company Number: B0517104A

PATIENT
  Age: 60 Year
  Sex: Female

DRUGS (22)
  1. AUGMENTIN '125' [Suspect]
     Indication: DRUG USE FOR UNKNOWN INDICATION
     Route: 065
     Dates: start: 20080226, end: 20080318
  2. IMUREL [Suspect]
     Indication: DRUG USE FOR UNKNOWN INDICATION
     Route: 065
     Dates: start: 20080225
  3. CALCIPARINE [Suspect]
     Indication: DRUG USE FOR UNKNOWN INDICATION
     Route: 065
     Dates: start: 20080221
  4. ARANESP [Suspect]
     Indication: ANAEMIA
     Route: 065
  5. OFLOCET [Suspect]
     Indication: DRUG USE FOR UNKNOWN INDICATION
     Route: 065
     Dates: end: 20080318
  6. PANTOPRAZOLE SODIUM [Suspect]
     Indication: DRUG USE FOR UNKNOWN INDICATION
     Route: 065
     Dates: end: 20080327
  7. PREDNISONE [Concomitant]
     Indication: DRUG USE FOR UNKNOWN INDICATION
     Route: 065
  8. XOLAAM [Concomitant]
     Indication: DRUG USE FOR UNKNOWN INDICATION
     Route: 065
  9. ASASANTINE [Concomitant]
     Indication: DRUG USE FOR UNKNOWN INDICATION
     Route: 065
  10. AMLOR [Concomitant]
     Indication: DRUG USE FOR UNKNOWN INDICATION
     Route: 065
  11. DETENSIEL [Concomitant]
     Indication: DRUG USE FOR UNKNOWN INDICATION
     Route: 065
  12. HYPERIUM [Concomitant]
     Indication: DRUG USE FOR UNKNOWN INDICATION
     Route: 065
  13. HALDOL [Concomitant]
     Indication: DRUG USE FOR UNKNOWN INDICATION
     Route: 065
  14. NOZINAN [Concomitant]
     Indication: DRUG USE FOR UNKNOWN INDICATION
     Route: 065
  15. ATARAX [Concomitant]
     Indication: DRUG USE FOR UNKNOWN INDICATION
     Route: 065
  16. LASILIX [Concomitant]
     Indication: DRUG USE FOR UNKNOWN INDICATION
     Route: 065
     Dates: start: 20080221
  17. HEMIGOXINE [Concomitant]
     Indication: DRUG USE FOR UNKNOWN INDICATION
     Route: 065
     Dates: start: 20080221
  18. NEORAL [Concomitant]
     Route: 065
  19. ROCALTROL [Concomitant]
     Route: 065
  20. IRBESARTAN [Concomitant]
     Route: 065
  21. FUROSEMIDE [Concomitant]
     Route: 065
  22. IRON SUPPLEMENT [Concomitant]
     Route: 065

REACTIONS (10)
  - ACUTE PULMONARY OEDEMA [None]
  - ANAEMIA [None]
  - CARDIAC FAILURE [None]
  - CHOLESTASIS [None]
  - EOSINOPHILIA [None]
  - PLEURAL EFFUSION [None]
  - POLYURIA [None]
  - RASH MACULO-PAPULAR [None]
  - THROMBOCYTOPENIA [None]
  - TOXIC SKIN ERUPTION [None]
